FAERS Safety Report 18992246 (Version 1)
Quarter: 2021Q1

REPORT INFORMATION
  Report Type: Spontaneous
  Country: US (occurrence: US)
  Receive Date: 20210310
  Receipt Date: 20210310
  Transmission Date: 20210420
  Serious: Yes (Other)
  Sender: FDA-Public Use
  Company Number: US-MALLINCKRODT PHARMACEUTICALS-T202100923

PATIENT
  Sex: Female

DRUGS (1)
  1. H.P. ACTHAR [Suspect]
     Active Substance: CORTICOTROPIN
     Indication: POLYMYOSITIS
     Dosage: 80 UNITS, THREE TIMES WEEKLY
     Route: 058
     Dates: start: 20180515

REACTIONS (2)
  - Polymyositis [Not Recovered/Not Resolved]
  - Condition aggravated [Not Recovered/Not Resolved]
